FAERS Safety Report 9360899 (Version 1)
Quarter: 2013Q2

REPORT INFORMATION
  Report Type: Spontaneous
  Country: ES (occurrence: ES)
  Receive Date: 20130621
  Receipt Date: 20130621
  Transmission Date: 20140414
  Serious: Yes (Other)
  Sender: FDA-Public Use
  Company Number: ES-PFIZER INC-2013184114

PATIENT
  Age: 70 Year
  Sex: Female
  Weight: 65 kg

DRUGS (2)
  1. ARTILOG [Suspect]
     Indication: PAIN
     Dosage: 200 MG, 1X/DAY (0-0-0-1)
     Route: 048
     Dates: start: 20121106, end: 20130601
  2. OMEPRAZOLE [Concomitant]
     Dosage: 20 MG, 1X/DAY (20 MG ONCE DAILY, IN THE MORNING)
     Dates: start: 20121105

REACTIONS (1)
  - Ulcerative keratitis [Recovering/Resolving]
